FAERS Safety Report 19965638 (Version 3)
Quarter: 2021Q4

REPORT INFORMATION
  Report Type: Spontaneous
  Country: JP (occurrence: JP)
  Receive Date: 20211018
  Receipt Date: 20211218
  Transmission Date: 20220303
  Serious: Yes (Life-Threatening, Hospitalization, Other)
  Sender: FDA-Public Use
  Company Number: JP-TAKEDA-2021TUS063692

PATIENT
  Age: 17 Year
  Sex: Male
  Weight: 50 kg

DRUGS (16)
  1. INTUNIV [Suspect]
     Active Substance: GUANFACINE HYDROCHLORIDE
     Indication: Attention deficit hyperactivity disorder
     Dosage: 600 MILLIGRAM, QD
     Route: 048
  2. INTUNIV [Suspect]
     Active Substance: GUANFACINE HYDROCHLORIDE
     Dosage: 1 MILLIGRAM, QD
     Route: 048
     Dates: start: 20181122, end: 20181211
  3. INTUNIV [Suspect]
     Active Substance: GUANFACINE HYDROCHLORIDE
     Dosage: 2 MILLIGRAM, QD
     Route: 048
     Dates: start: 20181212, end: 20190205
  4. INTUNIV [Suspect]
     Active Substance: GUANFACINE HYDROCHLORIDE
     Dosage: 3 MILLIGRAM, QD
     Route: 048
     Dates: start: 20190206
  5. INTUNIV [Suspect]
     Active Substance: GUANFACINE HYDROCHLORIDE
     Dosage: 278 MILLIGRAM, QD
     Route: 048
     Dates: start: 20211009, end: 20211009
  6. BILASTINE [Concomitant]
     Active Substance: BILASTINE
     Indication: Rhinitis allergic
     Dosage: 20 MILLIGRAM, QD
     Route: 048
  7. BILASTINE [Concomitant]
     Active Substance: BILASTINE
     Dosage: 440 MILLIGRAM, QD
     Route: 048
     Dates: start: 20211009, end: 20211009
  8. BILASTINE [Concomitant]
     Active Substance: BILASTINE
     Dosage: 2 GRAM
     Route: 048
     Dates: start: 20181212, end: 20190205
  9. BILASTINE [Concomitant]
     Active Substance: BILASTINE
     Dosage: 378 UNK
     Route: 048
     Dates: start: 20211009
  10. BILASTINE [Concomitant]
     Active Substance: BILASTINE
     Dosage: 3 GRAM
     Route: 048
     Dates: start: 20190206
  11. MONTELUKAST SODIUM [Concomitant]
     Active Substance: MONTELUKAST SODIUM
     Indication: Rhinitis allergic
     Dosage: 10 MILLIGRAM
     Route: 048
  12. MONTELUKAST SODIUM [Concomitant]
     Active Substance: MONTELUKAST SODIUM
     Dosage: 40 MILLIGRAM, QD
     Route: 048
     Dates: start: 20211009, end: 20211009
  13. LOXOPROFEN SODIUM DIHYDRATE [Concomitant]
     Active Substance: LOXOPROFEN SODIUM DIHYDRATE
     Indication: Analgesic therapy
     Dosage: 480 MILLIGRAM, QD
     Route: 048
     Dates: start: 20211009, end: 20211009
  14. METOCLOPRAMIDE [Concomitant]
     Active Substance: METOCLOPRAMIDE
     Indication: Vomiting
     Dosage: 50 MILLIGRAM, QD
     Route: 048
     Dates: start: 20211009, end: 20211009
  15. CETIRIZINE HYDROCHLORIDE [Concomitant]
     Active Substance: CETIRIZINE HYDROCHLORIDE
     Dosage: UNK
     Dates: start: 20211009, end: 20211009
  16. CALONAL [Concomitant]
     Active Substance: ACETAMINOPHEN
     Dosage: 800 MILLIGRAM, QD
     Dates: start: 20211009, end: 20211009

REACTIONS (5)
  - Liver disorder [Recovering/Resolving]
  - Pulmonary oedema [Recovering/Resolving]
  - Cardiac dysfunction [Not Recovered/Not Resolved]
  - Urine abnormality [Not Recovered/Not Resolved]
  - Intentional overdose [Unknown]

NARRATIVE: CASE EVENT DATE: 20211010
